FAERS Safety Report 25905373 (Version 1)
Quarter: 2025Q4

REPORT INFORMATION
  Report Type: Spontaneous
  Country: EU (occurrence: EU)
  Receive Date: 20251010
  Receipt Date: 20251010
  Transmission Date: 20260117
  Serious: Yes (Death, Hospitalization, Other)
  Sender: BAXTER
  Company Number: EU-BAXTER-2025BAX022315

PATIENT
  Age: 84 Year
  Sex: Female

DRUGS (2)
  1. OLIMEL E [Suspect]
     Active Substance: AMINO ACIDS\DEXTROSE\ELECTROLYTES NOS\SOYBEAN OIL
     Indication: Parenteral nutrition
     Dosage: UNK (VIA PERIPHERAL INTRAVENOUS CATHETER (PIVC))
     Route: 042
     Dates: start: 20250614, end: 20250630
  2. POTASSIUM CHLORIDE [Concomitant]
     Active Substance: POTASSIUM CHLORIDE
     Dosage: UNK
     Route: 065
     Dates: start: 202506

REACTIONS (5)
  - Candida infection [Fatal]
  - Systemic candida [Fatal]
  - Delirium [Unknown]
  - Gastrostomy tube site complication [Unknown]
  - Pyrexia [Unknown]

NARRATIVE: CASE EVENT DATE: 20250625
